FAERS Safety Report 19077151 (Version 1)
Quarter: 2021Q1

REPORT INFORMATION
  Report Type: Report from Study
  Country: IT (occurrence: IT)
  Receive Date: 20210331
  Receipt Date: 20210331
  Transmission Date: 20210420
  Serious: Yes (Life-Threatening, Hospitalization)
  Sender: FDA-Public Use
  Company Number: IT-TEVA-2021-IT-1893194

PATIENT
  Age: 57 Year
  Sex: Male
  Weight: 78 kg

DRUGS (6)
  1. ATRA [Suspect]
     Active Substance: TRETINOIN
     Indication: ACUTE PROMYELOCYTIC LEUKAEMIA
     Dosage: 90 MILLIGRAM DAILY; LAST DOSE PRIOR TO SAE: 15?DEC?2020
     Route: 048
     Dates: start: 20201015, end: 20201031
  2. ATRA [Suspect]
     Active Substance: TRETINOIN
     Dosage: 160 MILLIGRAM DAILY; LAST DOSE PRIOR TO SAE: 15?DEC?2020
     Route: 048
     Dates: start: 20201015, end: 20201215
  3. ARSENIC TRIOXIDE. [Suspect]
     Active Substance: ARSENIC TRIOXIDE
     Dosage: 11 MILLIGRAM DAILY; LAST DOSE PRIOR TO SAE: 8?DEC?2020
     Route: 042
     Dates: start: 20201028, end: 20201208
  4. ARSENIC TRIOXIDE. [Suspect]
     Active Substance: ARSENIC TRIOXIDE
     Indication: ACUTE PROMYELOCYTIC LEUKAEMIA
     Dosage: 12 MILLIGRAM DAILY; LAST DOSE PRIOR TO SAE: 8?DEC?2020
     Route: 042
     Dates: start: 20201028, end: 20201031
  5. IDARUBICIN [Concomitant]
     Active Substance: IDARUBICIN
     Indication: ACUTE PROMYELOCYTIC LEUKAEMIA
     Dates: start: 20201017, end: 20201019
  6. OLMESARTAN HYDROCHLOROTHIAZIDE [Concomitant]
     Active Substance: HYDROCHLOROTHIAZIDE\OLMESARTAN MEDOXOMIL
     Indication: HYPERTENSION
     Route: 048
     Dates: start: 2018, end: 20201028

REACTIONS (3)
  - Myocarditis [Recovered/Resolved]
  - Pleural effusion [Recovered/Resolved]
  - Pericardial effusion [Recovered/Resolved]

NARRATIVE: CASE EVENT DATE: 20201102
